FAERS Safety Report 13104575 (Version 1)
Quarter: 2017Q1

REPORT INFORMATION
  Report Type: Spontaneous
  Country: FR (occurrence: FR)
  Receive Date: 20170111
  Receipt Date: 20170111
  Transmission Date: 20170428
  Serious: Yes (Other)
  Sender: FDA-Public Use
  Company Number: FR-AMGEN-FRASP2016152011

PATIENT
  Age: 92 Year
  Sex: Female
  Weight: 58 kg

DRUGS (1)
  1. BLINCYTO [Suspect]
     Active Substance: BLINATUMOMAB
     Indication: ACUTE LYMPHOCYTIC LEUKAEMIA
     Dosage: 09 UNK, D1-D7
     Route: 065
     Dates: start: 20160810, end: 201610

REACTIONS (2)
  - Acute lymphocytic leukaemia [Unknown]
  - Myalgia [Unknown]
